FAERS Safety Report 11328495 (Version 2)
Quarter: 2015Q4

REPORT INFORMATION
  Report Type: Spontaneous
  Country: FR (occurrence: FR)
  Receive Date: 20150731
  Receipt Date: 20151020
  Transmission Date: 20160304
  Serious: Yes (Life-Threatening)
  Sender: FDA-Public Use
  Company Number: FR-OTSUKA-2015_006527

PATIENT

DRUGS (3)
  1. BUSULFAN [Suspect]
     Active Substance: BUSULFAN
     Indication: STEM CELL TRANSPLANT
     Dosage: 130 MG/M2, UNK
     Route: 042
     Dates: start: 20141214, end: 20141216
  2. FLUDARABINE [Suspect]
     Active Substance: FLUDARABINE PHOSPHATE
     Indication: STEM CELL TRANSPLANT
     Dosage: 30 MG/M2, UNK
     Route: 042
     Dates: start: 20141212, end: 20141217
  3. THYMOGLOBULINE [Suspect]
     Active Substance: LAPINE T-LYMPHOCYTE IMMUNE GLOBULIN
     Indication: STEM CELL TRANSPLANT
     Dosage: 2.5 MG/M2, UNK
     Route: 042
     Dates: start: 20141215, end: 20141217

REACTIONS (5)
  - Rash maculo-papular [Unknown]
  - Jaundice cholestatic [Unknown]
  - Acute kidney injury [Unknown]
  - Hyperthermia [Recovered/Resolved]
  - Hepatocellular injury [Unknown]

NARRATIVE: CASE EVENT DATE: 20141216
